FAERS Safety Report 8947872 (Version 1)
Quarter: 2012Q4

REPORT INFORMATION
  Report Type: Spontaneous
  Country: US (occurrence: None)
  Receive Date: 20121127
  Receipt Date: 20121127
  Transmission Date: 20130627
  Serious: Yes (Other)
  Sender: FDA-Public Use
  Company Number: DSA_61046_2012

PATIENT
  Sex: Male

DRUGS (1)
  1. ELIDEL [Suspect]
     Indication: ECZEMA
     Dosage: (DF, TO UPPER PORTION OF FACE AND LEFT CHEEK, BELOW THE EYE; FREQUENCY UNKNOWN TOPICAL)
     Route: 061
     Dates: end: 2010

REACTIONS (4)
  - Skin discolouration [None]
  - Scab [None]
  - Drug ineffective [None]
  - Basal cell carcinoma [None]
